FAERS Safety Report 14424530 (Version 4)
Quarter: 2018Q1

REPORT INFORMATION
  Report Type: Spontaneous
  Country: US (occurrence: US)
  Receive Date: 20180123
  Receipt Date: 20180312
  Transmission Date: 20180509
  Serious: Yes (Hospitalization)
  Sender: FDA-Public Use
  Company Number: US-PFIZER INC-2018030355

PATIENT
  Age: 56 Year
  Sex: Male
  Weight: 104.3 kg

DRUGS (3)
  1. LYRICA [Suspect]
     Active Substance: PREGABALIN
     Dosage: 75 MG, 3X/DAY (EVERY 8 HOURS)
     Route: 048
     Dates: start: 20171220, end: 201801
  2. LYRICA [Suspect]
     Active Substance: PREGABALIN
     Indication: PAIN
     Dosage: 75 MG, 2X/DAY
     Route: 048
     Dates: start: 201712
  3. LYRICA [Suspect]
     Active Substance: PREGABALIN
     Dosage: 75 MG, 3X/DAY (EVERY 8 HOURS)
     Route: 048
     Dates: start: 20171228, end: 20180112

REACTIONS (4)
  - Dyspnoea [Not Recovered/Not Resolved]
  - Swelling face [Not Recovered/Not Resolved]
  - Tinnitus [Not Recovered/Not Resolved]
  - Headache [Not Recovered/Not Resolved]

NARRATIVE: CASE EVENT DATE: 201712
